FAERS Safety Report 10622986 (Version 2)
Quarter: 2014Q4

REPORT INFORMATION
  Report Type: Spontaneous
  Country: ES (occurrence: ES)
  Receive Date: 20141203
  Receipt Date: 20141217
  Transmission Date: 20150529
  Serious: Yes (Death, Congenital Anomaly)
  Sender: FDA-Public Use
  Company Number: ES-009507513-1411ESP012978

PATIENT
  Sex: Female

DRUGS (8)
  1. MIDAZOLAM [Concomitant]
     Active Substance: MIDAZOLAM\MIDAZOLAM HYDROCHLORIDE
     Dates: start: 20080122
  2. DOPAMINE HYDROCHLORIDE. [Concomitant]
     Active Substance: DOPAMINE HYDROCHLORIDE
     Dates: start: 20080122
  3. BUSCAPINA [Suspect]
     Active Substance: BUTYLSCOPOLAMINE BROMIDE
     Dosage: 2 AMPOULES IV
     Route: 064
     Dates: start: 20080118
  4. DOBUTAMINE [Concomitant]
     Active Substance: DOBUTAMINE\DOBUTAMINE HYDROCHLORIDE
     Dates: start: 20080122
  5. CELESTONE CRONODOSE [Suspect]
     Active Substance: BETAMETHASONE
     Indication: THREATENED LABOUR
     Route: 064
     Dates: start: 20080118, end: 20080119
  6. NIFEDIPINE. [Suspect]
     Active Substance: NIFEDIPINE
     Indication: THREATENED LABOUR
     Dosage: 30 MG 18/01 16:45H, 4 DOSES 20 MG (20:45, 2:45, 8:45,14:45)
     Route: 064
     Dates: start: 20080118, end: 20080119
  7. ANTIMICROBIAL (UNSPECIFIED) [Concomitant]
     Active Substance: UNSPECIFIED INGREDIENT
     Dates: start: 20080122
  8. PHENOBARBITAL. [Concomitant]
     Active Substance: PHENOBARBITAL
     Dates: start: 20080122

REACTIONS (4)
  - Splenic haemorrhage [Fatal]
  - Infarction [Fatal]
  - Hepatic necrosis [Fatal]
  - Hypoxia [Fatal]

NARRATIVE: CASE EVENT DATE: 20080201
